FAERS Safety Report 17819685 (Version 1)
Quarter: 2020Q2

REPORT INFORMATION
  Report Type: Spontaneous
  Country: US (occurrence: US)
  Receive Date: 20200524
  Receipt Date: 20200524
  Transmission Date: 20200714
  Serious: No
  Sender: FDA-Public Use
  Company Number: US-ELI_LILLY_AND_COMPANY-US202005008005

PATIENT
  Sex: Male

DRUGS (1)
  1. HUMALOG [Suspect]
     Active Substance: INSULIN LISPRO
     Indication: TYPE 1 DIABETES MELLITUS
     Dosage: UNK UNK, UNKNOWN
     Route: 058
     Dates: start: 2017

REACTIONS (4)
  - Behaviour disorder [Recovered/Resolved]
  - Drug hypersensitivity [Recovered/Resolved]
  - Disorientation [Recovered/Resolved]
  - Blood glucose decreased [Recovered/Resolved]

NARRATIVE: CASE EVENT DATE: 2017
